FAERS Safety Report 18034093 (Version 1)
Quarter: 2020Q3

REPORT INFORMATION
  Report Type: Spontaneous
  Country: FR (occurrence: FR)
  Receive Date: 20200716
  Receipt Date: 20200716
  Transmission Date: 20201103
  Serious: Yes (Other)
  Sender: FDA-Public Use
  Company Number: FR-ASTRAZENECA-2020SE88774

PATIENT
  Age: 96 Year
  Sex: Female
  Weight: 57 kg

DRUGS (1)
  1. SYMBICORT [Suspect]
     Active Substance: BUDESONIDE\FORMOTEROL FUMARATE DIHYDRATE
     Indication: ASTHMA
     Dosage: DAILY
     Route: 055
     Dates: start: 20200606, end: 20200614

REACTIONS (3)
  - Product prescribing error [Recovered/Resolved]
  - Asthma [Recovered/Resolved]
  - Wrong dosage form [Recovered/Resolved]

NARRATIVE: CASE EVENT DATE: 20200611
